FAERS Safety Report 14350057 (Version 3)
Quarter: 2018Q1

REPORT INFORMATION
  Report Type: Spontaneous
  Country: GB (occurrence: GB)
  Receive Date: 20180104
  Receipt Date: 20180223
  Transmission Date: 20180509
  Serious: Yes (Hospitalization, Other)
  Sender: FDA-Public Use
  Company Number: GB-AUROBINDO-AUR-APL-2018-000405

PATIENT
  Age: 37 Year
  Sex: Female

DRUGS (5)
  1. CLOZARIL [Suspect]
     Active Substance: CLOZAPINE
     Indication: SCHIZOPHRENIA
     Dosage: UNK ()
     Route: 048
     Dates: start: 20171122, end: 2017
  2. CLOZARIL [Suspect]
     Active Substance: CLOZAPINE
     Dosage: UNK ()
     Route: 048
     Dates: start: 20170111, end: 20170220
  3. ATENOLOL. [Concomitant]
     Active Substance: ATENOLOL
     Indication: TACHYCARDIA
     Dosage: 25 MG, QD
     Route: 048
     Dates: start: 20170119, end: 20170221
  4. LAMOTRIGINE. [Suspect]
     Active Substance: LAMOTRIGINE
     Indication: PRODUCT USED FOR UNKNOWN INDICATION
     Dosage: UNK ()
     Route: 065
     Dates: start: 20170101, end: 2017
  5. ATENOLOL. [Concomitant]
     Active Substance: ATENOLOL
     Dosage: 825 MG

REACTIONS (5)
  - Haematoma [Unknown]
  - Mental impairment [Unknown]
  - Seizure [Recovered/Resolved]
  - Facial bones fracture [Unknown]
  - Hypersensitivity [Unknown]

NARRATIVE: CASE EVENT DATE: 20170101
